FAERS Safety Report 5527571-6 (Version None)
Quarter: 2007Q4

REPORT INFORMATION
  Report Type: 
  Country: None (occurrence: None)
  Receive Date: 20071128
  Receipt Date: 20071116
  Transmission Date: 20080405
  Serious: Yes (Hospitalization, Other)
  Sender: FDA-Public Use
  Company Number: US-ELI_LILLY_AND_COMPANY-US200711003912

PATIENT
  Age: 45 Year
  Sex: Female

DRUGS (1)
  1. FORTEO [Suspect]

REACTIONS (5)
  - HOSPITALISATION [None]
  - LUNG NEOPLASM MALIGNANT [None]
  - METASTASES TO BONE [None]
  - SPINAL FUSION SURGERY [None]
  - SURGERY [None]
